FAERS Safety Report 5517716-6 (Version None)
Quarter: 2007Q4

REPORT INFORMATION
  Report Type: 
  Country: None (occurrence: None)
  Receive Date: 20071113
  Receipt Date: 20071030
  Transmission Date: 20080405
  Serious: Yes (Hospitalization)
  Sender: FDA-Public Use
  Company Number: US021601

PATIENT
  Age: 51 Year
  Sex: Female
  Weight: 47.6277 kg

DRUGS (9)
  1. PROVIGIL [Suspect]
     Indication: SOMNOLENCE
     Dosage: 400 MG QAM ORAL
     Route: 048
     Dates: start: 19980101, end: 20071001
  2. PROVIGIL [Suspect]
     Indication: SOMNOLENCE
     Dosage: 200 MG QAM ORAL
     Route: 048
     Dates: start: 20071001
  3. CYMBALTA [Concomitant]
  4. TRICOR [Concomitant]
  5. VYTORIN [Concomitant]
  6. PREMPHASE 14/14 [Concomitant]
  7. VITAMIN E [Concomitant]
  8. MULTI-VITAMIN [Concomitant]
  9. TYLENOL [Concomitant]

REACTIONS (15)
  - AGGRESSION [None]
  - AGITATION [None]
  - ANXIETY [None]
  - BIPOLAR DISORDER [None]
  - CONFUSIONAL STATE [None]
  - DIARRHOEA [None]
  - EPISTAXIS [None]
  - FEELING DRUNK [None]
  - INSOMNIA [None]
  - IRRITABILITY [None]
  - NAUSEA [None]
  - NERVOUSNESS [None]
  - PALPITATIONS [None]
  - PARANOIA [None]
  - TREMOR [None]
